FAERS Safety Report 6679580-1 (Version None)
Quarter: 2010Q2

REPORT INFORMATION
  Report Type: 
  Country: None (occurrence: None)
  Receive Date: 20100408
  Receipt Date: 20090722
  Transmission Date: 20101027
  Serious: No
  Sender: FDA-Public Use
  Company Number: 2009-00510

PATIENT
  Age: 64 Year
  Sex: Female
  Weight: 56.6996 kg

DRUGS (2)
  1. ZICAM ALLERGY RELIEF NASAL GEL [Suspect]
     Dosage: BID : 2 YEARS - (?)
  2. RHINOCORT [Concomitant]

REACTIONS (1)
  - ANOSMIA [None]
